FAERS Safety Report 26040990 (Version 1)
Quarter: 2025Q4

REPORT INFORMATION
  Report Type: Spontaneous
  Country: JP (occurrence: JP)
  Receive Date: 20251113
  Receipt Date: 20251113
  Transmission Date: 20260117
  Serious: Yes (Life-Threatening, Hospitalization, Other)
  Sender: MERCK SHARP & DOHME LLC
  Company Number: JP-MSD-M2022-07497

PATIENT
  Age: 61 Year
  Sex: Female
  Weight: 43 kg

DRUGS (7)
  1. KEYTRUDA [Suspect]
     Active Substance: PEMBROLIZUMAB
     Indication: Endometrial cancer recurrent
     Dosage: DOSE DESCRIPTION : 200 MILLIGRAM, Q3W?DAILY DOSE : 9.4 MILLIGRAM?REGIMEN DOSE : 200  MILLIGRAM
     Route: 041
     Dates: start: 20220125, end: 20220125
  2. KEYTRUDA [Suspect]
     Active Substance: PEMBROLIZUMAB
     Indication: Endometrial cancer recurrent
     Dosage: DOSE DESCRIPTION : 200 MILLIGRAM, Q3W?DAILY DOSE : 9.4 MILLIGRAM?REGIMEN DOSE : 200  MILLIGRAM
     Route: 041
     Dates: start: 20220307, end: 20220307
  3. LENVIMA [Suspect]
     Active Substance: LENVATINIB
     Indication: Endometrial cancer recurrent
     Dosage: DOSE DESCRIPTION : 20 MILLIGRAM, QD?DAILY DOSE : 20 MILLIGRAM?REGIMEN DOSE : 300  MILLIGRAM
     Route: 048
     Dates: start: 20220125, end: 20220208
  4. LENVIMA [Suspect]
     Active Substance: LENVATINIB
     Indication: Endometrial cancer recurrent
     Dosage: DOSE DESCRIPTION : 20 MILLIGRAM, QD?DAILY DOSE : 20 MILLIGRAM?REGIMEN DOSE : 140  MILLIGRAM
     Route: 048
     Dates: start: 20220222, end: 20220228
  5. LENVIMA [Suspect]
     Active Substance: LENVATINIB
     Indication: Endometrial cancer recurrent
     Dosage: DOSE DESCRIPTION : 14 MILLIGRAM, QD?DAILY DOSE : 14 MILLIGRAM?REGIMEN DOSE : 322  MILLIGRAM
     Route: 048
     Dates: start: 20220308, end: 20220330
  6. LUNESTA [Concomitant]
     Active Substance: ESZOPICLONE
     Indication: Insomnia
     Dosage: DOSE DESCRIPTION : 3 MILLIGRAM, QD?DAILY DOSE : 3 MILLIGRAM?REGIMEN DOSE : 198  MILLIGRAM
     Route: 048
     Dates: start: 20220125, end: 20220331
  7. MIYA-BM [Concomitant]
     Active Substance: CLOSTRIDIUM BUTYRICUM SPORES STRAIN M-55
     Indication: Diarrhoea
     Dosage: DOSE DESCRIPTION : 1 GRAM, TID?DAILY DOSE : 3 GRAM?REGIMEN DOSE : 198  GRAM
     Route: 048
     Dates: start: 20220125, end: 20220331

REACTIONS (10)
  - Small intestinal perforation [Recovered/Resolved with Sequelae]
  - Malignant neoplasm progression [Unknown]
  - Gastrointestinal oedema [Unknown]
  - Septic shock [Unknown]
  - Enterocolitis [Unknown]
  - Hyperthyroidism [Recovering/Resolving]
  - Hypothyroidism [Not Recovered/Not Resolved]
  - Constipation [Not Recovered/Not Resolved]
  - Blood glucose increased [Not Recovered/Not Resolved]
  - Decreased appetite [Recovering/Resolving]

NARRATIVE: CASE EVENT DATE: 20220101
